FAERS Safety Report 7548550-3 (Version None)
Quarter: 2011Q2

REPORT INFORMATION
  Report Type: 
  Country: None (occurrence: None)
  Receive Date: 20110524
  Receipt Date: 20110310
  Transmission Date: 20111010
  Serious: No
  Sender: FDA-Public Use
  Company Number: 026162

PATIENT
  Sex: Male

DRUGS (1)
  1. CIMZIA [Suspect]
     Indication: CROHN'S DISEASE
     Dosage: (200 MG 1X/WEEK SUBCUTANEOUS)
     Route: 058
     Dates: start: 20101104

REACTIONS (6)
  - FEELING ABNORMAL [None]
  - INAPPROPRIATE SCHEDULE OF DRUG ADMINISTRATION [None]
  - SYRINGE ISSUE [None]
  - PAIN [None]
  - MALAISE [None]
  - DRUG INEFFECTIVE [None]
